FAERS Safety Report 6492660-9 (Version None)
Quarter: 2009Q4

REPORT INFORMATION
  Report Type: 
  Country: None (occurrence: None)
  Receive Date: 20091211
  Receipt Date: 20091211
  Transmission Date: 20100525
  Serious: No
  Sender: FDA-Public Use
  Company Number: None

PATIENT
  Age: 66 Year
  Sex: Female
  Weight: 54.8852 kg

DRUGS (2)
  1. BONIVA [Suspect]
     Indication: OSTEOPOROSIS
     Dosage: 150 MG QMONTH PO
     Route: 048
     Dates: start: 20090915
  2. BONIVA [Suspect]
     Dosage: 150 MG QMONTH PO
     Route: 048
     Dates: start: 20091015

REACTIONS (3)
  - DIARRHOEA [None]
  - FEELING ABNORMAL [None]
  - HALLUCINATION, VISUAL [None]
